FAERS Safety Report 6551060-3 (Version None)
Quarter: 2010Q1

REPORT INFORMATION
  Report Type: 
  Country: None (occurrence: None)
  Receive Date: 20100122
  Receipt Date: 20100122
  Transmission Date: 20100710
  Serious: Yes (Other)
  Sender: FDA-Public Use
  Company Number: None

PATIENT
  Sex: Female
  Weight: 80.7403 kg

DRUGS (4)
  1. RALOXIFENE [Suspect]
     Indication: OSTEOPENIA
     Dosage: 60 MG 1 DAILY
     Dates: start: 20090905, end: 20091228
  2. RALOXIFENE [Suspect]
     Indication: OSTEOPENIA
     Dosage: 60 MG 1 DAILY
     Dates: start: 20100115, end: 20100118
  3. SINGULAIR [Concomitant]
  4. NASACORT [Concomitant]

REACTIONS (4)
  - BLOOD PRESSURE INCREASED [None]
  - DEVICE MALFUNCTION [None]
  - DIZZINESS [None]
  - HEADACHE [None]
